FAERS Safety Report 4968213-8 (Version None)
Quarter: 2006Q2

REPORT INFORMATION
  Report Type: 
  Country: None (occurrence: None)
  Receive Date: 20060405
  Receipt Date: 20060323
  Transmission Date: 20061013
  Serious: Yes (Hospitalization, Other)
  Sender: FDA-Public Use
  Company Number: 2006041449

PATIENT
  Sex: Female

DRUGS (2)
  1. LIPITOR [Suspect]
     Indication: TYPE IIA HYPERLIPIDAEMIA
     Dosage: (40 MG), ORAL
     Route: 048
  2. AZITHROMYCIN [Suspect]
     Indication: ILL-DEFINED DISORDER
     Dates: start: 20051201

REACTIONS (1)
  - AUTOIMMUNE HEPATITIS [None]
